FAERS Safety Report 25876921 (Version 1)
Quarter: 2025Q4

REPORT INFORMATION
  Report Type: Spontaneous
  Country: US (occurrence: US)
  Receive Date: 20251003
  Receipt Date: 20251003
  Transmission Date: 20260117
  Serious: No
  Sender: TAKEDA
  Company Number: US-TAKEDA-2025TUS084644

PATIENT
  Age: 38 Year
  Sex: Male
  Weight: 84 kg

DRUGS (1)
  1. VYVANSE [Suspect]
     Active Substance: LISDEXAMFETAMINE DIMESYLATE
     Indication: Attention deficit hyperactivity disorder
     Dosage: UNK

REACTIONS (1)
  - Urine amphetamine positive [Unknown]

NARRATIVE: CASE EVENT DATE: 20250201
